FAERS Safety Report 9633523 (Version 1)
Quarter: 2013Q4

REPORT INFORMATION
  Report Type: Spontaneous
  Country: DE (occurrence: None)
  Receive Date: 20131017
  Receipt Date: 20131017
  Transmission Date: 20140711
  Serious: Yes (Life-Threatening, Congenital Anomaly)
  Sender: FDA-Public Use
  Company Number: AUR-APL-2013-08467

PATIENT
  Sex: Female

DRUGS (3)
  1. METFORMIN (METFORMIN) [Suspect]
     Indication: POLYCYSTIC OVARIES
     Dosage: 1000 MG (500 MG, 2 IN 1 D), TRANSPLACENTAL?
     Route: 064
  2. TRAMAL (TRAMADOL HYDROCHLORIDE) [Concomitant]
  3. FOLSAEURE (FOLIC ACID) [Concomitant]

REACTIONS (6)
  - Foetal exposure during pregnancy [None]
  - Meningomyelocele [None]
  - Ectopia cordis [None]
  - Gastroschisis [None]
  - Off label use [None]
  - Maternal drugs affecting foetus [None]
